FAERS Safety Report 6154010-7 (Version None)
Quarter: 2009Q2

REPORT INFORMATION
  Report Type: 
  Country: None (occurrence: None)
  Receive Date: 20090414
  Receipt Date: 20090402
  Transmission Date: 20091009
  Serious: Yes (Other)
  Sender: FDA-Public Use
  Company Number: PHHY2009JP06883

PATIENT
  Age: 15 Year
  Sex: Female

DRUGS (11)
  1. CYCLOSPORINE [Suspect]
     Indication: NEPHROTIC SYNDROME
     Dosage: 150 MG DAILY
     Route: 065
  2. CYCLOSPORINE [Suspect]
     Dosage: 50 MG, ONCE/SINGLE
  3. PREDNISOLONE [Suspect]
     Indication: NEPHROTIC SYNDROME
     Dosage: 75 MG/DAY
  4. PREDNISOLONE [Suspect]
     Dosage: 60 MG/DAY
  5. PREDNISOLONE [Suspect]
     Dosage: 40 MG/DAY
  6. PREDNISOLONE [Suspect]
     Dosage: 30 MG/DAY
  7. PREDNISOLONE [Suspect]
     Dosage: 40 MG EVERY 2 DAYS
  8. METHYLPREDNISOLONE 4MG TAB [Suspect]
     Indication: NEPHROTIC SYNDROME
     Dosage: 1 G/DAY
  9. METHYLPREDNISOLONE 4MG TAB [Suspect]
     Dosage: 500 MG/DAY
  10. MIZORIBINE [Concomitant]
     Dosage: UNK
  11. MIZORIBINE [Concomitant]
     Dosage: 50 MG/DAY

REACTIONS (8)
  - DIARRHOEA [None]
  - HYPERTENSION [None]
  - LOW DENSITY LIPOPROTEIN APHERESIS [None]
  - MYCOPLASMA INFECTION [None]
  - NEPHROPATHY TOXIC [None]
  - OLIGURIA [None]
  - PROTEINURIA [None]
  - RENAL IMPAIRMENT [None]
